FAERS Safety Report 14773663 (Version 1)
Quarter: 2018Q2

REPORT INFORMATION
  Report Type: Report from Study
  Country: US (occurrence: US)
  Receive Date: 20180418
  Receipt Date: 20180418
  Transmission Date: 20180711
  Serious: Yes (Hospitalization, Other)
  Sender: FDA-Public Use
  Company Number: US-BRISTOL-MYERS SQUIBB COMPANY-BMS-2018-031777

PATIENT
  Sex: Female

DRUGS (1)
  1. ABATACEPT [Suspect]
     Active Substance: ABATACEPT
     Indication: RHEUMATOID ARTHRITIS
     Route: 042

REACTIONS (7)
  - Chest pain [Unknown]
  - Off label use [Unknown]
  - Back disorder [Unknown]
  - Blood cholesterol increased [Unknown]
  - Malaise [Unknown]
  - Pain [Unknown]
  - Nausea [Unknown]
